FAERS Safety Report 12559748 (Version 2)
Quarter: 2016Q3

REPORT INFORMATION
  Report Type: Spontaneous
  Country: TW (occurrence: TW)
  Receive Date: 20160715
  Receipt Date: 20160802
  Transmission Date: 20161109
  Serious: Yes (Death, Hospitalization, Other)
  Sender: FDA-Public Use
  Company Number: TW-009507513-1607TWN005575

PATIENT
  Age: 84 Year
  Sex: Female

DRUGS (4)
  1. SINEMET [Suspect]
     Active Substance: CARBIDOPA\LEVODOPA
     Indication: PARKINSON^S DISEASE
     Dosage: 1/2 TABLET , BID, DAILY DOSE : 25/100 MG
     Route: 048
     Dates: start: 20151218, end: 20151224
  2. SINEMET [Suspect]
     Active Substance: CARBIDOPA\LEVODOPA
     Indication: PARKINSONISM
     Dosage: 1/2 TABLET, TID,DAILY DOSE : 37.5/150 MG
     Route: 048
     Dates: start: 20151225, end: 20160616
  3. SINEMET [Suspect]
     Active Substance: CARBIDOPA\LEVODOPA
     Dosage: 1 TABLET, TID, DAILY DOSE: 75/300 MG
     Route: 048
     Dates: start: 20160617, end: 20160619
  4. SINEMET [Suspect]
     Active Substance: CARBIDOPA\LEVODOPA
     Dosage: 1/2 TABLET, TID, DAILY DOSE: 37.5/150 MG
     Route: 048
     Dates: start: 20160620, end: 20160620

REACTIONS (7)
  - Multiple organ dysfunction syndrome [Fatal]
  - White blood cell count increased [Fatal]
  - Vomiting [Recovered/Resolved]
  - Nausea [Recovered/Resolved]
  - Pneumonia [Fatal]
  - Infection [Fatal]
  - Septic shock [Fatal]

NARRATIVE: CASE EVENT DATE: 201606
